FAERS Safety Report 7669860-5 (Version None)
Quarter: 2011Q3

REPORT INFORMATION
  Report Type: 
  Country: None (occurrence: None)
  Receive Date: 20110808
  Receipt Date: 20110727
  Transmission Date: 20111222
  Serious: No
  Sender: FDA-Public Use
  Company Number: US-B.I. PHARMACEUTICALS,INC./RIDGEFIELD-2011-BP-18603BP

PATIENT
  Sex: Female

DRUGS (12)
  1. VESICARE [Concomitant]
     Indication: HYPERTONIC BLADDER
  2. ZOVIRAX [Concomitant]
     Indication: SJOGREN'S SYNDROME
  3. EVOXAC [Concomitant]
     Indication: SJOGREN'S SYNDROME
  4. PRADAXA [Suspect]
     Indication: ATRIAL FIBRILLATION
     Dosage: 300 MG
     Route: 048
     Dates: start: 20110501
  5. CRESTOR [Concomitant]
     Indication: BLOOD CHOLESTEROL INCREASED
     Dosage: 10 MG
  6. DIOVAN [Concomitant]
     Indication: HYPERTENSION
     Dosage: 80 MG
  7. FLEXERIL [Concomitant]
     Indication: SJOGREN'S SYNDROME
  8. ACIPHEX [Concomitant]
     Indication: GASTROOESOPHAGEAL REFLUX DISEASE
     Dosage: 20 MG
  9. LORTAB [Concomitant]
     Indication: SJOGREN'S SYNDROME
  10. ATENOLOL [Concomitant]
     Indication: HYPERTENSION
     Dosage: 25 MG
  11. KLOR-CON [Concomitant]
     Indication: SUPPLEMENTATION THERAPY
     Dosage: 10 MEQ
  12. REGLAN [Concomitant]
     Indication: GASTROOESOPHAGEAL REFLUX DISEASE

REACTIONS (1)
  - FATIGUE [None]
